FAERS Safety Report 12356543 (Version 2)
Quarter: 2016Q4

REPORT INFORMATION
  Report Type: Report from Study
  Country: CA (occurrence: CA)
  Receive Date: 20160511
  Receipt Date: 20161121
  Transmission Date: 20170207
  Serious: Yes (Other)
  Sender: FDA-Public Use
  Company Number: PHHY2016CA053475

PATIENT
  Age: 28 Year
  Sex: Male

DRUGS (1)
  1. GILENYA [Suspect]
     Active Substance: FINGOLIMOD HYDROCHLORIDE
     Indication: PRODUCT USED FOR UNKNOWN INDICATION
     Dosage: UNK
     Route: 048
     Dates: start: 20150716

REACTIONS (5)
  - Asthenopia [Unknown]
  - Hypertension [Unknown]
  - Macular oedema [Unknown]
  - Visual impairment [Unknown]
  - Expanded disability status scale score increased [Unknown]

NARRATIVE: CASE EVENT DATE: 201601
